FAERS Safety Report 7218537-9 (Version None)
Quarter: 2011Q1

REPORT INFORMATION
  Report Type: 
  Country: None (occurrence: None)
  Receive Date: 20110110
  Receipt Date: 20110104
  Transmission Date: 20110831
  Serious: Yes (Other)
  Sender: FDA-Public Use
  Company Number: NL-PFIZER INC-2010154267

PATIENT
  Age: 85 Year
  Sex: Male

DRUGS (22)
  1. CICLESONIDE [Concomitant]
     Dosage: UNK
  2. TERBUTALINE [Concomitant]
  3. TIOTROPIUM [Concomitant]
     Dosage: 1 UNK, 1X/DAY
  4. XALATAN [Suspect]
     Indication: GLAUCOMA
     Dosage: ONCE DAILY
     Dates: start: 20040101
  5. CARBOMER [Concomitant]
     Dosage: 1 GTT, AS NEEDED
  6. SODIUM CHLORIDE [Concomitant]
  7. PARACETAMOL [Concomitant]
     Dosage: 1 UNK, 2X/DAY
  8. FLUOROMETHOLONE [Concomitant]
  9. MONTELUKAST [Concomitant]
     Dosage: 1 UNK, 1X/DAY
  10. DESLORATADINE [Concomitant]
     Dosage: 1 UNK, 1X/DAY
  11. CETOMACROGOL 1000 [Concomitant]
  12. CLOBETASONE [Concomitant]
     Dosage: UNK
  13. DORZOLAMIDE [Concomitant]
     Dosage: UNK
  14. THEOPHYLLINE [Concomitant]
     Dosage: 1 UNK, 2X/DAY
  15. COLECALCIFEROL [Concomitant]
     Dosage: 2 ML, 1X/DAY
  16. FUSIDIC ACID [Concomitant]
  17. METHYLCELLULOSE [Concomitant]
  18. OMEPRAZOLE [Concomitant]
     Dosage: 1 UNK, 1X/DAY
  19. DEXAMETHASONE [Concomitant]
  20. PREDNISOLONE [Concomitant]
     Dosage: 1 UNK, 1X/DAY
  21. ACICLOVIR [Concomitant]
  22. FORMOTEROL [Concomitant]

REACTIONS (1)
  - EYE INFLAMMATION [None]
